FAERS Safety Report 7515119-6 (Version None)
Quarter: 2011Q2

REPORT INFORMATION
  Report Type: 
  Country: None (occurrence: None)
  Receive Date: 20110526
  Receipt Date: 20110526
  Transmission Date: 20111010
  Serious: Yes (Hospitalization)
  Sender: FDA-Public Use
  Company Number: None

PATIENT
  Age: 58 Year
  Sex: Male
  Weight: 72 kg

DRUGS (2)
  1. GABAPENTIN [Suspect]
     Indication: PAIN
     Dosage: 100MG BID PO
     Route: 048
     Dates: start: 20110418, end: 20110520
  2. NAPROXEN [Suspect]
     Indication: PAIN
     Dosage: 500MG BID PO
     Route: 048
     Dates: start: 20110107, end: 20110520

REACTIONS (1)
  - THROMBOCYTOPENIA [None]
